FAERS Safety Report 12521709 (Version 1)
Quarter: 2016Q3

REPORT INFORMATION
  Report Type: Spontaneous
  Country: AT (occurrence: AT)
  Receive Date: 20160701
  Receipt Date: 20160701
  Transmission Date: 20161109
  Serious: No
  Sender: FDA-Public Use
  Company Number: AT-VERNALIS THERAPEUTICS, INC.-2016VRN00037

PATIENT
  Age: 9 Month
  Weight: 6.8 kg

DRUGS (1)
  1. CODEINE [Suspect]
     Active Substance: CODEINE
     Dosage: 1.7 MG/KG, ONCE
     Route: 048

REACTIONS (1)
  - Somnolence [Unknown]
